FAERS Safety Report 23865104 (Version 5)
Quarter: 2024Q3

REPORT INFORMATION
  Report Type: Report from Study
  Country: DE (occurrence: DE)
  Receive Date: 20240517
  Receipt Date: 20240826
  Transmission Date: 20241017
  Serious: Yes (Other)
  Sender: JOHNSON AND JOHNSON
  Company Number: DE-JNJFOC-20240522607

PATIENT
  Age: 59 Year
  Sex: Male

DRUGS (2)
  1. SPRAVATO [Suspect]
     Active Substance: ESKETAMINE
     Indication: Depression
     Dosage: 56 MG (2 DEVICES)
     Dates: start: 20240408, end: 20240408
  2. SPRAVATO [Suspect]
     Active Substance: ESKETAMINE
     Dosage: 84 MG (3 DEVICES) PATIENT RECEIVED DOSES ON 15-APR-2024, 18-APR-2024, 22-APR-2024, 25-APR-2024, 29-A
     Dates: start: 20240411, end: 20240603

REACTIONS (7)
  - Syncope [Recovered/Resolved]
  - Gait disturbance [Recovered/Resolved]
  - Increased need for sleep [Recovered/Resolved]
  - Dizziness [Recovered/Resolved]
  - Illusion [Recovered/Resolved]
  - Anxiety [Recovered/Resolved]
  - Drug ineffective [Not Recovered/Not Resolved]

NARRATIVE: CASE EVENT DATE: 20240430
